FAERS Safety Report 8296276-3 (Version None)
Quarter: 2012Q2

REPORT INFORMATION
  Report Type: 
  Country: None (occurrence: None)
  Receive Date: 20120418
  Receipt Date: 20120410
  Transmission Date: 20120825
  Serious: Yes (Other)
  Sender: FDA-Public Use
  Company Number: NL-ROXANE LABORATORIES, INC.-2012-RO-01028RO

PATIENT
  Sex: Male
  Weight: 3 kg

DRUGS (1)
  1. LITHIUM CARBONATE [Suspect]
     Indication: MATERNAL EXPOSURE DURING PREGNANCY
     Route: 064

REACTIONS (1)
  - TOXICITY TO VARIOUS AGENTS [None]
